FAERS Safety Report 4510226-4 (Version None)
Quarter: 2004Q4

REPORT INFORMATION
  Report Type: 
  Country: None (occurrence: None)
  Receive Date: 20041119
  Receipt Date: 20041102
  Transmission Date: 20050328
  Serious: Yes (Death, Hospitalization)
  Sender: FDA-Public Use
  Company Number: US_0411107865

PATIENT
  Age: 89 Year
  Sex: Male

DRUGS (3)
  1. VANCOMYCIN HCL [Suspect]
     Indication: STAPHYLOCOCCAL BACTERAEMIA
     Dosage: 1 G/2 DAY
  2. RIFAMPICIN [Concomitant]
  3. LINEZOLID [Concomitant]

REACTIONS (7)
  - CATHETER RELATED INFECTION [None]
  - DISEASE RECURRENCE [None]
  - ENTEROCOCCAL BACTERAEMIA [None]
  - RENAL FAILURE [None]
  - SHOCK [None]
  - STAPHYLOCOCCAL INFECTION [None]
  - THROMBOCYTOPENIA [None]
